FAERS Safety Report 19374125 (Version 2)
Quarter: 2022Q1

REPORT INFORMATION
  Report Type: Spontaneous
  Country: US (occurrence: US)
  Receive Date: 20210603
  Receipt Date: 20220112
  Transmission Date: 20220423
  Serious: No
  Sender: FDA-Public Use
  Company Number: US-GILEAD-2021-0534104

PATIENT
  Sex: Male
  Weight: 72.57 kg

DRUGS (40)
  1. ATRIPLA [Suspect]
     Active Substance: EFAVIRENZ\EMTRICITABINE\TENOFOVIR DISOPROXIL FUMARATE
     Indication: HIV infection
     Dosage: UNK
     Route: 048
     Dates: start: 2007
  2. ATRIPLA [Suspect]
     Active Substance: EFAVIRENZ\EMTRICITABINE\TENOFOVIR DISOPROXIL FUMARATE
     Dosage: UNK
     Route: 048
     Dates: start: 200707, end: 2010
  3. ATRIPLA [Suspect]
     Active Substance: EFAVIRENZ\EMTRICITABINE\TENOFOVIR DISOPROXIL FUMARATE
     Dosage: UNK
     Route: 048
     Dates: start: 2010, end: 2014
  4. ATRIPLA [Suspect]
     Active Substance: EFAVIRENZ\EMTRICITABINE\TENOFOVIR DISOPROXIL FUMARATE
     Dosage: UNK
     Route: 048
     Dates: start: 2014, end: 2017
  5. DESCOVY [Concomitant]
     Active Substance: EMTRICITABINE\TENOFOVIR ALAFENAMIDE FUMARATE
  6. ATORVASTATIN [Concomitant]
     Active Substance: ATORVASTATIN
  7. ESOMEPRAZOLE [Concomitant]
     Active Substance: ESOMEPRAZOLE
  8. ALBUTEROL [Concomitant]
     Active Substance: ALBUTEROL
  9. TIVICAY [Concomitant]
     Active Substance: DOLUTEGRAVIR SODIUM
  10. ALPHA LIPOIC ACID [Concomitant]
     Active Substance: .ALPHA.-LIPOIC ACID
  11. BUSPIRONE [Concomitant]
     Active Substance: BUSPIRONE HYDROCHLORIDE
  12. CICLOPIROX [Concomitant]
     Active Substance: CICLOPIROX
  13. CLINDAMYCIN [Concomitant]
     Active Substance: CLINDAMYCIN
  14. CYCLOBENZAPRINE [Concomitant]
     Active Substance: CYCLOBENZAPRINE
  15. FLUCONAZOLE [Concomitant]
     Active Substance: FLUCONAZOLE
  16. HIBICLENS [Concomitant]
     Active Substance: CHLORHEXIDINE GLUCONATE
  17. HYDROXYZINE PAMOATE [Concomitant]
     Active Substance: HYDROXYZINE PAMOATE
  18. IBUPROFEN [Concomitant]
     Active Substance: IBUPROFEN
  19. INCRUSE ELLIPTA [Concomitant]
     Active Substance: UMECLIDINIUM BROMIDE
  20. ISONIAZID [Concomitant]
     Active Substance: ISONIAZID
  21. LORATADINE [Concomitant]
     Active Substance: LORATADINE
  22. LORAZEPAM [Concomitant]
     Active Substance: LORAZEPAM
  23. LYRICA [Concomitant]
     Active Substance: PREGABALIN
  24. MELOXICAM [Concomitant]
     Active Substance: MELOXICAM
  25. NYSTATIN [Concomitant]
     Active Substance: NYSTATIN
  26. OMEPRAZOLE [Concomitant]
     Active Substance: OMEPRAZOLE
  27. OXYBUTYNIN [Concomitant]
     Active Substance: OXYBUTYNIN
  28. TRICLOSAN [Concomitant]
     Active Substance: TRICLOSAN
  29. PREGABALIN [Concomitant]
     Active Substance: PREGABALIN
  30. PRENATE ELITE [Concomitant]
     Active Substance: .ALPHA.-TOCOPHEROL\ASCORBIC ACID\BIOTIN\CALCIUM CARBONATE\CHOLECALCIFEROL\COPPER\CYANOCOBALAMIN\FERR
  31. QVAR [Concomitant]
     Active Substance: BECLOMETHASONE DIPROPIONATE
  32. RANITIDINE [Concomitant]
     Active Substance: RANITIDINE
  33. SAW PALMETTO EXTRACT [Concomitant]
  34. SUMATRIPTAN [Concomitant]
     Active Substance: SUMATRIPTAN
  35. TAMSULOSIN HYDROCHLORIDE [Concomitant]
     Active Substance: TAMSULOSIN HYDROCHLORIDE
  36. TERBINAFINE [Concomitant]
     Active Substance: TERBINAFINE
  37. TIZANIDINE HYDROCHLORIDE [Concomitant]
     Active Substance: TIZANIDINE HYDROCHLORIDE
  38. TRIAMCINOLONE [Concomitant]
     Active Substance: TRIAMCINOLONE
  39. VITAMIN B6 [Concomitant]
     Active Substance: PYRIDOXINE HYDROCHLORIDE
  40. VITAMIN D3 [Concomitant]
     Active Substance: CHOLECALCIFEROL

REACTIONS (7)
  - Bone density decreased [Not Recovered/Not Resolved]
  - Pain [Not Recovered/Not Resolved]
  - Emotional distress [Not Recovered/Not Resolved]
  - Anxiety [Not Recovered/Not Resolved]
  - Anhedonia [Unknown]
  - Grip strength decreased [Unknown]
  - Depression [Not Recovered/Not Resolved]

NARRATIVE: CASE EVENT DATE: 20150101
